FAERS Safety Report 25654726 (Version 1)
Quarter: 2025Q3

REPORT INFORMATION
  Report Type: Report from Study
  Country: EU (occurrence: EU)
  Receive Date: 20250807
  Receipt Date: 20250807
  Transmission Date: 20251021
  Serious: Yes (Other)
  Sender: RANBAXY
  Company Number: EU-SUN PHARMACEUTICAL INDUSTRIES LTD-2025RR-521046

PATIENT
  Age: 18 Year
  Sex: Male

DRUGS (7)
  1. GABAPENTIN [Suspect]
     Active Substance: GABAPENTIN
     Indication: Neurofibroma
     Dosage: 100 MILLIGRAM, BID
     Route: 065
  2. GABAPENTIN [Suspect]
     Active Substance: GABAPENTIN
     Dosage: 300 MILLIGRAM, BID
     Route: 065
  3. ACETAMINOPHEN [Suspect]
     Active Substance: ACETAMINOPHEN
     Indication: Neurofibroma
     Dosage: 1000 MILLIGRAM, TID
     Route: 065
  4. OXYCODONE [Suspect]
     Active Substance: OXYCODONE
     Indication: Neurofibroma
     Dosage: 0.5 MILLIGRAM, DAILY
     Route: 065
  5. OXYCODONE [Suspect]
     Active Substance: OXYCODONE
     Dosage: 10 MILLIGRAM, BID
     Route: 065
  6. MUPIROCIN [Suspect]
     Active Substance: MUPIROCIN
     Indication: Paronychia
     Dosage: UNK, BID
     Route: 061
  7. CLOBETASOL [Suspect]
     Active Substance: CLOBETASOL
     Indication: Paronychia
     Dosage: 0.05 PERCENT, BID
     Route: 061

REACTIONS (4)
  - Therapeutic product effect incomplete [Unknown]
  - Disease progression [Unknown]
  - Sleep disorder [Unknown]
  - Condition aggravated [Unknown]
